FAERS Safety Report 14285153 (Version 1)
Quarter: 2017Q4

REPORT INFORMATION
  Report Type: Spontaneous
  Country: US (occurrence: US)
  Receive Date: 20171214
  Receipt Date: 20171214
  Transmission Date: 20180321
  Serious: Yes (Hospitalization, Other)
  Sender: FDA-Public Use
  Company Number: US-APOTEX-2017AP022808

PATIENT
  Age: 49 Year
  Sex: Female

DRUGS (2)
  1. DIPHENHYDRAMINE HCL [Suspect]
     Active Substance: DIPHENHYDRAMINE HYDROCHLORIDE
     Indication: PRODUCT USED FOR UNKNOWN INDICATION
     Dosage: 12.5 MG, BID
     Route: 065
  2. CIPROFLOXACIN OPHTHALMIC SOLUTION USP [Suspect]
     Active Substance: CIPROFLOXACIN
     Indication: CONJUNCTIVITIS
     Dosage: UNK
     Route: 065

REACTIONS (4)
  - Erythema multiforme [Recovering/Resolving]
  - Type IV hypersensitivity reaction [Recovering/Resolving]
  - Drug ineffective [Unknown]
  - Conjunctivitis [Unknown]
